FAERS Safety Report 9952964 (Version 1)
Quarter: 2014Q1

REPORT INFORMATION
  Report Type: Spontaneous
  Country: US (occurrence: US)
  Receive Date: 20140304
  Receipt Date: 20140304
  Transmission Date: 20141002
  Serious: No
  Sender: FDA-Public Use
  Company Number: US-AMGEN-USASP2013068152

PATIENT
  Age: 52 Year
  Sex: Male
  Weight: 88.44 kg

DRUGS (8)
  1. ENBREL [Suspect]
     Indication: PRODUCT USED FOR UNKNOWN INDICATION
     Dosage: 50 MG, QWK
     Route: 058
  2. CYMBALTA [Concomitant]
     Dosage: 20 MG, UNK
  3. ATORVASTATIN [Concomitant]
     Dosage: 10 MG, UNK
  4. FOLIC ACID [Concomitant]
     Dosage: UNK
  5. TRAZODONE [Concomitant]
     Dosage: 50 MG, UNK
  6. SYNTHROID [Concomitant]
     Dosage: 75 MUG, UNK
  7. LISINOPRIL [Concomitant]
     Dosage: 10 MG, UNK
  8. METHOTREXATE [Concomitant]
     Dosage: 2.5 MG, UNK

REACTIONS (3)
  - Fatigue [Unknown]
  - Abdominal discomfort [Unknown]
  - Confusional state [Unknown]
